FAERS Safety Report 4759150-2 (Version None)
Quarter: 2005Q3

REPORT INFORMATION
  Report Type: 
  Country: None (occurrence: None)
  Receive Date: 20050831
  Receipt Date: 20050816
  Transmission Date: 20060218
  Serious: Yes (Death)
  Sender: FDA-Public Use
  Company Number: S05-CAN-03094-01

PATIENT
  Age: 34 Year
  Sex: Male

DRUGS (2)
  1. CITALOPRAM HYDROBROMIDE [Suspect]
     Dosage: 20 MG QD PO
     Route: 048
  2. ZYPREXA [Suspect]
     Dosage: 10 MG QD IM
     Route: 030

REACTIONS (2)
  - CARDIAC FIBRILLATION [None]
  - CYANOSIS [None]
